FAERS Safety Report 10723002 (Version 2)
Quarter: 2016Q4

REPORT INFORMATION
  Report Type: Spontaneous
  Country: US (occurrence: US)
  Receive Date: 20150120
  Receipt Date: 20161229
  Transmission Date: 20170206
  Serious: Yes (Other)
  Sender: FDA-Public Use
  Company Number: US-AUROBINDO-AUR-APL-2015-00289

PATIENT
  Age: 55 Year
  Sex: Male

DRUGS (1)
  1. LISINOPRIL-HYDROCHLOROTHIAZIDE [Suspect]
     Active Substance: HYDROCHLOROTHIAZIDE\LISINOPRIL
     Indication: PRODUCT USED FOR UNKNOWN INDICATION
     Dosage: UNK
     Route: 065

REACTIONS (4)
  - Asthenia [Recovered/Resolved]
  - Dyspnoea [Recovered/Resolved]
  - Hypercalcaemia [Recovered/Resolved]
  - Electrocardiogram ST segment elevation [Recovered/Resolved]
